FAERS Safety Report 9702722 (Version 2)
Quarter: 2014Q1

REPORT INFORMATION
  Report Type: Spontaneous
  Country: GB (occurrence: None)
  Receive Date: 20131120
  Receipt Date: 20140211
  Transmission Date: 20141002
  Serious: Yes (Other)
  Sender: FDA-Public Use
  Company Number: AUR-APL-2013-09680

PATIENT
  Age: 75 Year
  Sex: Female

DRUGS (5)
  1. OLANZAPINE [Suspect]
     Indication: PRODUCT USED FOR UNKNOWN INDICATION
     Dates: start: 2000, end: 20131104
  2. BUDESONIDE (BUDESONIDE) [Concomitant]
  3. LEVOTHYROXINE (LEVOTHYROXINE) [Concomitant]
  4. SENNA (SENNA ALEXANDRINA) [Concomitant]
  5. TIOTROPIUM (TIOTROPIUM) [Concomitant]

REACTIONS (4)
  - Neutropenia [None]
  - Cough [None]
  - Oropharyngeal pain [None]
  - Emotional distress [None]
